FAERS Safety Report 13755625 (Version 1)
Quarter: 2017Q3

REPORT INFORMATION
  Report Type: Spontaneous
  Country: US (occurrence: US)
  Receive Date: 20170714
  Receipt Date: 20170714
  Transmission Date: 20171127
  Serious: No
  Sender: FDA-Public Use
  Company Number: None

PATIENT

DRUGS (1)
  1. ENOXAPARIN [Suspect]
     Active Substance: ENOXAPARIN
     Dates: start: 20170628, end: 20170628

REACTIONS (2)
  - Injury associated with device [None]
  - Wrong technique in product usage process [None]

NARRATIVE: CASE EVENT DATE: 20170628
